FAERS Safety Report 6563802-1 (Version None)
Quarter: 2010Q1

REPORT INFORMATION
  Report Type: 
  Country: None (occurrence: None)
  Receive Date: 20100130
  Receipt Date: 20091230
  Transmission Date: 20100710
  Serious: No
  Sender: FDA-Public Use
  Company Number: US-ABBOTT-10P-163-0617693-00

PATIENT
  Sex: Female
  Weight: 43.584 kg

DRUGS (3)
  1. HUMIRA [Suspect]
     Indication: CROHN'S DISEASE
     Dates: start: 20090313
  2. PENTAZA [Concomitant]
     Indication: CROHN'S DISEASE
  3. DOXYCYCLINE [Concomitant]
     Indication: ACNE

REACTIONS (5)
  - RASH ERYTHEMATOUS [None]
  - RASH PRURITIC [None]
  - SKIN BURNING SENSATION [None]
  - SKIN NODULE [None]
  - SKIN WARM [None]
